FAERS Safety Report 22083058 (Version 1)
Quarter: 2023Q1

REPORT INFORMATION
  Report Type: Spontaneous
  Country: TW (occurrence: None)
  Receive Date: 20230310
  Receipt Date: 20230310
  Transmission Date: 20230417
  Serious: Yes (Death, Other)
  Sender: FDA-Public Use
  Company Number: TW-ROCHE-3303921

PATIENT
  Age: 72 Year
  Sex: Female

DRUGS (8)
  1. ATEZOLIZUMAB [Suspect]
     Active Substance: ATEZOLIZUMAB
     Indication: Hepatocellular carcinoma
     Dosage: ATEZOLIZUMAB 1200 MG + BEVACIZUMAB 500 MG Q3W
     Route: 065
     Dates: start: 20220104
  2. BEVACIZUMAB [Suspect]
     Active Substance: BEVACIZUMAB
     Indication: Hepatocellular carcinoma
     Dosage: ATEZOLIZUMAB 1200 MG + BEVACIZUMAB 500 MG Q3W
     Route: 065
     Dates: start: 20220104
  3. CELLCEPT [Suspect]
     Active Substance: MYCOPHENOLATE MOFETIL
     Indication: Hepatocellular carcinoma
     Route: 065
  4. PREDNISOLONE [Concomitant]
     Active Substance: PREDNISOLONE
     Indication: Hepatocellular carcinoma
  5. PREDNISOLONE [Concomitant]
     Active Substance: PREDNISOLONE
  6. ENTECAVIR [Concomitant]
     Active Substance: ENTECAVIR
     Indication: Hepatocellular carcinoma
  7. METHYLPREDNISOLONE [Concomitant]
     Active Substance: METHYLPREDNISOLONE
     Indication: Hepatocellular carcinoma
     Route: 041
  8. LEVOTHYROXINE [Concomitant]
     Active Substance: LEVOTHYROXINE
     Indication: Hepatocellular carcinoma
     Dosage: UNKNOWN DOSE

REACTIONS (6)
  - Hypothyroidism [Unknown]
  - Blood bilirubin increased [Unknown]
  - Hepatitis [Unknown]
  - Hepatic encephalopathy [Unknown]
  - Pneumonia [Fatal]
  - Acute respiratory distress syndrome [Fatal]

NARRATIVE: CASE EVENT DATE: 20221006
